FAERS Safety Report 4337515-0 (Version None)
Quarter: 2004Q2

REPORT INFORMATION
  Report Type: 
  Country: None (occurrence: None)
  Receive Date: 20040413
  Receipt Date: 20040305
  Transmission Date: 20050107
  Serious: No
  Sender: FDA-Public Use
  Company Number: JP-GLAXOSMITHKLINE-A0501723A

PATIENT
  Age: 77 Year
  Sex: Male

DRUGS (14)
  1. NAVELBINE [Suspect]
     Indication: LUNG NEOPLASM MALIGNANT
     Route: 042
     Dates: start: 20030825, end: 20030922
  2. CISPLATIN [Suspect]
     Indication: LUNG NEOPLASM MALIGNANT
     Route: 042
     Dates: start: 20030825, end: 20030825
  3. ELECTROLYTE SOLUTION [Concomitant]
     Dates: start: 20030901
  4. MANNITOL [Concomitant]
  5. LASIX [Concomitant]
  6. LACTATED RINGER'S [Concomitant]
  7. METOCLOPRAMIDE [Concomitant]
  8. KYTRIL [Concomitant]
  9. SOLU-MEDROL [Concomitant]
     Dates: start: 20030825, end: 20030825
  10. DOMPERIDONE [Concomitant]
  11. FAMOTIDINE [Concomitant]
     Dates: start: 20030903
  12. BROCIN [Concomitant]
  13. FILGRASTIM [Concomitant]
  14. SOLITA-T NO.3 [Concomitant]

REACTIONS (6)
  - BLOOD UREA INCREASED [None]
  - DEHYDRATION [None]
  - MALAISE [None]
  - NAUSEA [None]
  - NEUTROPENIA [None]
  - RENAL IMPAIRMENT [None]
